FAERS Safety Report 5037478-9 (Version None)
Quarter: 2006Q2

REPORT INFORMATION
  Report Type: 
  Country: None (occurrence: None)
  Receive Date: 20060628
  Receipt Date: 20051017
  Transmission Date: 20061013
  Serious: No
  Sender: FDA-Public Use
  Company Number: US-GLAXOSMITHKLINE-A0578475A

PATIENT
  Age: 59 Year
  Sex: Female

DRUGS (1)
  1. VENTOLIN [Suspect]
     Indication: EMPHYSEMA
     Route: 055

REACTIONS (2)
  - COUGH [None]
  - WHEEZING [None]
